FAERS Safety Report 10786416 (Version 1)
Quarter: 2015Q1

REPORT INFORMATION
  Report Type: Report from Study
  Country: FR (occurrence: FR)
  Receive Date: 20150211
  Receipt Date: 20150211
  Transmission Date: 20150721
  Serious: Yes (Hospitalization)
  Sender: FDA-Public Use
  Company Number: FR-ABBVIE-12P-056-0928303-00

PATIENT
  Age: 24 Year
  Sex: Female

DRUGS (5)
  1. DIANTALVIC [Concomitant]
     Indication: CROHN^S DISEASE
  2. SMECTA [Concomitant]
     Active Substance: MONTMORILLONITE
     Indication: CROHN^S DISEASE
  3. SMECTA [Concomitant]
     Active Substance: MONTMORILLONITE
     Indication: DIARRHOEA
     Dates: start: 20090303, end: 2010
  4. HUMIRA [Suspect]
     Active Substance: ADALIMUMAB
     Indication: CROHN^S DISEASE
     Route: 058
     Dates: start: 20080923, end: 20091126
  5. DIANTALVIC [Concomitant]
     Indication: ABDOMINAL PAIN
     Dosage: 400MG/30MG
     Dates: start: 2009, end: 200911

REACTIONS (2)
  - Subileus [Recovered/Resolved]
  - Crohn^s disease [Recovered/Resolved]

NARRATIVE: CASE EVENT DATE: 20091214
